FAERS Safety Report 5455507-5 (Version None)
Quarter: 2007Q3

REPORT INFORMATION
  Report Type: 
  Country: None (occurrence: None)
  Receive Date: 20070914
  Receipt Date: 20070830
  Transmission Date: 20080115
  Serious: Yes (Other)
  Sender: FDA-Public Use
  Company Number: 8026451

PATIENT
  Age: 24 Year
  Sex: Female

DRUGS (5)
  1. KEPPRA [Suspect]
     Indication: STATUS EPILEPTICUS
     Dosage: 2000 MG IV
     Route: 042
     Dates: start: 20070828, end: 20070830
  2. KEPPRA [Suspect]
     Indication: STATUS EPILEPTICUS
     Dosage: 2000 MG IV
     Route: 042
     Dates: start: 20070830, end: 20070830
  3. KEPPRA [Suspect]
     Indication: STATUS EPILEPTICUS
     Dosage: 2000 MG IV
     Route: 042
     Dates: start: 20070830, end: 20070901
  4. KEPPRA [Suspect]
     Indication: STATUS EPILEPTICUS
     Dosage: 1500 MG 2/D PO
     Route: 048
     Dates: start: 20070901
  5. ATIVAN [Concomitant]

REACTIONS (3)
  - DRUG ADMINISTRATION ERROR [None]
  - INCORRECT ROUTE OF DRUG ADMINISTRATION [None]
  - STATUS EPILEPTICUS [None]
